FAERS Safety Report 7420389-9 (Version None)
Quarter: 2011Q2

REPORT INFORMATION
  Report Type: 
  Country: None (occurrence: None)
  Receive Date: 20110418
  Receipt Date: 20110414
  Transmission Date: 20111010
  Serious: Yes (Hospitalization, Other)
  Sender: FDA-Public Use
  Company Number: PHHY2010US50821

PATIENT
  Sex: Female

DRUGS (11)
  1. EXTAVIA [Suspect]
     Indication: MULTIPLE SCLEROSIS
     Dosage: 0.25 MG, QOD
     Route: 058
     Dates: start: 20100523
  2. CIPROFLOXACIN [Concomitant]
     Dosage: 500 MG, BID
  3. METHOCARBAMOL [Concomitant]
     Dosage: 750 MG, TID
  4. FLUOXETINE [Concomitant]
     Dosage: 20 MG, QD
  5. IRON SUPPLEMENTS [Concomitant]
     Dosage: 27 MG, QD
  6. SLEEP AID [Concomitant]
     Dosage: UNK UKN, PRN
  7. VITAMIN D [Concomitant]
     Dosage: 50000 IU, UNK
  8. IBUPROFEN [Concomitant]
     Dosage: 600 MG, TID
  9. STOOL SOFTENER [Concomitant]
     Dosage: UNK UKN, PRN
  10. METRONIDAZOLE [Concomitant]
     Dosage: 500 MG, BID
  11. VITAMIN B [Concomitant]
     Dosage: UNK UKN, UNK, SHOT MONTHLY

REACTIONS (10)
  - ROAD TRAFFIC ACCIDENT [None]
  - SENSATION OF HEAVINESS [None]
  - PAIN IN EXTREMITY [None]
  - DIZZINESS [None]
  - MUSCULAR WEAKNESS [None]
  - BACK PAIN [None]
  - COLITIS [None]
  - HAEMATOCHEZIA [None]
  - ANAEMIA [None]
  - BALANCE DISORDER [None]
